FAERS Safety Report 21217388 (Version 2)
Quarter: 2022Q3

REPORT INFORMATION
  Report Type: Spontaneous
  Country: US (occurrence: US)
  Receive Date: 20220816
  Receipt Date: 20220907
  Transmission Date: 20221026
  Serious: Yes (Other)
  Sender: FDA-Public Use
  Company Number: US-AMBI ENTERPRISES LLC-2022AMB00011

PATIENT
  Sex: Female

DRUGS (7)
  1. AMBI FADE NORMAL SKIN [Suspect]
     Active Substance: HYDROQUINONE\OCTINOXATE
     Indication: Skin discolouration
     Dosage: ONE TIME AND APPLIED A DAB ON EACH CHEEK
     Route: 061
     Dates: start: 20220720, end: 20220720
  2. PREDNISONE [Suspect]
     Active Substance: PREDNISONE
     Dosage: 3 TABLETS, DAILY FOR 3 DAYS
     Dates: start: 202207
  3. PREDNISONE [Suspect]
     Active Substance: PREDNISONE
     Dosage: 2 TABLETS DAILY FOR 3 DAYS
  4. PREDNISONE [Suspect]
     Active Substance: PREDNISONE
     Dosage: 1 TABLETS, DAILY FOR 3 DAYS
  5. PREDNISONE [Suspect]
     Active Substance: PREDNISONE
     Dosage: 0.5 TABLET DAILY FOR 2 DAYS
  6. METFORMIN [Concomitant]
     Active Substance: METFORMIN HYDROCHLORIDE
  7. LOSARTAN [Concomitant]
     Active Substance: LOSARTAN

REACTIONS (4)
  - Hypertension [Unknown]
  - Blood glucose increased [Unknown]
  - Skin discolouration [Unknown]
  - Dermatitis contact [Recovering/Resolving]

NARRATIVE: CASE EVENT DATE: 20220101
